FAERS Safety Report 7077372 (Version 2)
Quarter: 2014Q3

REPORT INFORMATION
  Report Type: Spontaneous
  Country: US (occurrence: None)
  Receive Date: 20090803
  Receipt Date: 20140922
  Transmission Date: 20150326
  Serious: Yes (Hospitalization, Other)
  Sender: FDA-Public Use
  Company Number: 2009S1005968

PATIENT
  Age: 70 Year
  Sex: Female
  Weight: 67.13 kg

DRUGS (3)
  1. PHOSPHO-SODA [Suspect]
     Active Substance: SODIUM PHOSPHATE, DIBASIC\SODIUM PHOSPHATE, MONOBASIC
     Indication: COLONOSCOPY
     Dosage: ; PO
     Route: 048
     Dates: start: 20061130, end: 20061130
  2. LOTREL [Concomitant]
     Active Substance: AMLODIPINE BESYLATE\BENAZEPRIL HYDROCHLORIDE
  3. HYDROCHLOROTHIAZIDE. [Concomitant]
     Active Substance: HYDROCHLOROTHIAZIDE

REACTIONS (11)
  - Adrenal mass [None]
  - Dysgeusia [None]
  - Dehydration [None]
  - Nephrosclerosis [None]
  - Renal failure chronic [None]
  - Hyperparathyroidism secondary [None]
  - Muscle spasms [None]
  - Renal tubular necrosis [None]
  - Dyspepsia [None]
  - Nephrogenic anaemia [None]
  - Vomiting [None]

NARRATIVE: CASE EVENT DATE: 20061205
